FAERS Safety Report 23682311 (Version 3)
Quarter: 2024Q3

REPORT INFORMATION
  Report Type: Spontaneous
  Country: IT (occurrence: None)
  Receive Date: 20240328
  Receipt Date: 20240822
  Transmission Date: 20241017
  Serious: Yes (Death, Other)
  Sender: ASTRAZENECA
  Company Number: 2024A067941

PATIENT
  Age: 53 Year
  Sex: Male

DRUGS (4)
  1. BUDESONIDE\FORMOTEROL\GLYCOPYRRONIUM [Suspect]
     Active Substance: BUDESONIDE\FORMOTEROL\GLYCOPYRRONIUM
     Indication: Chronic obstructive pulmonary disease
     Dates: start: 20230420, end: 20240314
  2. RABEPRAZOLE [Concomitant]
     Active Substance: RABEPRAZOLE
  3. IRBESARTAN [Concomitant]
     Active Substance: IRBESARTAN
  4. AMLODIPINE [Concomitant]
     Active Substance: AMLODIPINE BESYLATE

REACTIONS (4)
  - Hyperhidrosis [Fatal]
  - Dyspnoea [Fatal]
  - Erythema [Fatal]
  - Cough [Fatal]

NARRATIVE: CASE EVENT DATE: 20231201
